FAERS Safety Report 17272501 (Version 1)
Quarter: 2020Q1

REPORT INFORMATION
  Report Type: Spontaneous
  Country: US (occurrence: US)
  Receive Date: 20200114
  Receipt Date: 20200114
  Transmission Date: 20200409
  Serious: Yes (Disabling)
  Sender: FDA-Public Use
  Company Number: None

PATIENT
  Age: 74 Year
  Sex: Female
  Weight: 36 kg

DRUGS (20)
  1. EXCEDRIN [Concomitant]
     Active Substance: ACETAMINOPHEN\ASPIRIN\CAFFEINE
  2. CALTRATE [Concomitant]
     Active Substance: CALCIUM CARBONATE
  3. TUMERIC [Concomitant]
     Active Substance: HERBALS\TURMERIC
  4. WELLBUTRIN [Concomitant]
     Active Substance: BUPROPION HYDROCHLORIDE
  5. CENTRUM SILVER [Concomitant]
     Active Substance: MINERALS\VITAMINS
  6. TOPAMAX [Concomitant]
     Active Substance: TOPIRAMATE
  7. ASPIRIN. [Concomitant]
     Active Substance: ASPIRIN
  8. AIMOVIG [Suspect]
     Active Substance: ERENUMAB-AOOE
     Indication: MIGRAINE
     Dosage: ?          QUANTITY:140 INJECTION(S);OTHER FREQUENCY:ONCE A MONTH;?
     Route: 058
     Dates: start: 20191101, end: 20200114
  9. EFFEXOR [Concomitant]
     Active Substance: VENLAFAXINE HYDROCHLORIDE
  10. ESTER-C [Concomitant]
  11. VITAMIN B COMPLEX [Concomitant]
     Active Substance: CYANOCOBALAMIN\DEXPANTHENOL\NIACINAMIDE\PYRIDOXINE HYDROCHLORIDE\RIBOFLAVIN 5^-PHOSPHATE SODIUM\THIAMINE HYDROCHLORIDE\VITAMIN B COMPLEX
  12. D-3 [Concomitant]
     Active Substance: CHOLECALCIFEROL
  13. FOLIC ACID. [Concomitant]
     Active Substance: FOLIC ACID
  14. LIPITOR [Concomitant]
     Active Substance: ATORVASTATIN CALCIUM
  15. FIORICET [Concomitant]
     Active Substance: ACETAMINOPHEN\BUTALBITAL\CAFFEINE
  16. PEPCID [Concomitant]
     Active Substance: FAMOTIDINE
  17. MAXALT [Concomitant]
     Active Substance: RIZATRIPTAN BENZOATE
  18. PRESERVISION [Concomitant]
     Active Substance: MINERALS\VITAMINS
  19. PROBIOTIC [Concomitant]
     Active Substance: PROBIOTICS NOS
  20. SUDAFED-SINUS [Concomitant]

REACTIONS (15)
  - Balance disorder [None]
  - Joint stiffness [None]
  - Headache [None]
  - Abdominal pain upper [None]
  - Diarrhoea [None]
  - Vision blurred [None]
  - Dizziness [None]
  - Fatigue [None]
  - Feeling abnormal [None]
  - Alopecia [None]
  - Nausea [None]
  - Abdominal distension [None]
  - Musculoskeletal stiffness [None]
  - Back pain [None]
  - Disturbance in attention [None]

NARRATIVE: CASE EVENT DATE: 20191101
